FAERS Safety Report 15777928 (Version 1)
Quarter: 2018Q4

REPORT INFORMATION
  Report Type: Spontaneous
  Country: US (occurrence: US)
  Receive Date: 20181231
  Receipt Date: 20181231
  Transmission Date: 20190205
  Serious: Yes (Disabling)
  Sender: FDA-Public Use
  Company Number: None

PATIENT
  Age: 42 Year
  Sex: Female
  Weight: 94.4 kg

DRUGS (2)
  1. STRIBILD [Suspect]
     Active Substance: COBICISTAT\ELVITEGRAVIR\EMTRICITABINE\TENOFOVIR DISOPROXIL FUMARATE
     Indication: HIV INFECTION
     Route: 048
     Dates: start: 20151026, end: 20160501
  2. IBUPROFEN 600 MG [Concomitant]
     Active Substance: IBUPROFEN
     Dates: start: 20141208, end: 20171026

REACTIONS (1)
  - Alopecia [None]

NARRATIVE: CASE EVENT DATE: 20151026
